FAERS Safety Report 7808890-7 (Version None)
Quarter: 2011Q4

REPORT INFORMATION
  Report Type: 
  Country: None (occurrence: None)
  Receive Date: 20111012
  Receipt Date: 20111012
  Transmission Date: 20120403
  Serious: Yes (Hospitalization, Other)
  Sender: FDA-Public Use
  Company Number: PHHO2008US01099

PATIENT
  Sex: Female
  Weight: 84 kg

DRUGS (13)
  1. LEXAPRO [Concomitant]
  2. PROVIGIL [Concomitant]
  3. CLONAZEPAM [Concomitant]
  4. ZYRTEC-D 12 HOUR [Concomitant]
  5. GILENYA [Suspect]
     Indication: RELAPSING-REMITTING MULTIPLE SCLEROSIS
     Dosage: 0.5 MG, UNK
     Route: 048
     Dates: start: 20071009
  6. LYRICA [Concomitant]
  7. MECLIZINE [Concomitant]
  8. AVONEX [Concomitant]
  9. ORTHO TRI-CYCLEN [Concomitant]
  10. VALIUM [Concomitant]
  11. XANAX [Concomitant]
  12. SEROQUEL [Concomitant]
  13. CYMBALTA [Concomitant]

REACTIONS (5)
  - VOMITING [None]
  - CHILLS [None]
  - DIARRHOEA [None]
  - URINARY TRACT INFECTION [None]
  - ARTHRALGIA [None]
